FAERS Safety Report 6996391-8 (Version None)
Quarter: 2010Q3

REPORT INFORMATION
  Report Type: 
  Country: None (occurrence: None)
  Receive Date: 20100918
  Receipt Date: 20090210
  Transmission Date: 20110219
  Serious: No
  Sender: FDA-Public Use
  Company Number: US-WYE-H08157409

PATIENT
  Sex: Female
  Weight: 81.72 kg

DRUGS (6)
  1. EFFEXOR XR [Suspect]
     Indication: HOT FLUSH
     Dosage: OVERDOSE AMOUNT OF 450 MG 1 TIME PER 1 DAY
     Route: 048
     Dates: start: 20081231, end: 20081231
  2. ALLEGRA [Concomitant]
  3. NEXIUM [Concomitant]
  4. ACETYLSALICYLIC ACID [Concomitant]
  5. ETHANOL [Suspect]
     Dosage: FOUR BEERS
     Route: 048
     Dates: start: 20081231
  6. ATENOLOL [Concomitant]

REACTIONS (3)
  - ACCIDENTAL OVERDOSE [None]
  - BLOOD ALCOHOL INCREASED [None]
  - INCORRECT DOSE ADMINISTERED [None]
